FAERS Safety Report 5054797-0 (Version None)
Quarter: 2006Q3

REPORT INFORMATION
  Report Type: 
  Country: None (occurrence: None)
  Receive Date: 20060719
  Receipt Date: 20060706
  Transmission Date: 20061208
  Serious: Yes (Hospitalization)
  Sender: FDA-Public Use
  Company Number: 2006AP03090

PATIENT
  Age: 31900 Day
  Sex: Female

DRUGS (4)
  1. SEROQUEL [Suspect]
     Indication: AGITATION
     Route: 048
     Dates: start: 20060518, end: 20060525
  2. SEROQUEL [Suspect]
     Route: 048
     Dates: start: 20060526, end: 20060608
  3. ROHYPNOL [Concomitant]
     Indication: INSOMNIA
     Route: 048
     Dates: start: 20051019, end: 20060608
  4. MAYBALANCE C LIQUID DIET [Concomitant]
     Dates: end: 20060609

REACTIONS (1)
  - HEPATITIS [None]
